FAERS Safety Report 13916367 (Version 3)
Quarter: 2017Q4

REPORT INFORMATION
  Report Type: Report from Study
  Country: US (occurrence: US)
  Receive Date: 20170829
  Receipt Date: 20171117
  Transmission Date: 20180320
  Serious: Yes (Hospitalization)
  Sender: FDA-Public Use
  Company Number: US-BAYER-2017-159829

PATIENT
  Age: 66 Year
  Sex: Female
  Weight: 58.05 kg

DRUGS (5)
  1. ADEMPAS [Suspect]
     Active Substance: RIOCIGUAT
     Indication: PULMONARY ARTERIAL HYPERTENSION
     Dosage: 0.5 MG, TID
     Route: 048
     Dates: start: 20170720
  2. XARELTO [Concomitant]
     Active Substance: RIVAROXABAN
     Dosage: UNK
  3. ADEMPAS [Suspect]
     Active Substance: RIOCIGUAT
     Indication: PULMONARY ARTERIAL HYPERTENSION
     Dosage: 0.5 MG, TID
     Route: 048
  4. AMLODIPINE [Concomitant]
     Active Substance: AMLODIPINE BESYLATE
     Dosage: UNK
  5. ADEMPAS [Suspect]
     Active Substance: RIOCIGUAT
     Indication: PULMONARY ARTERIAL HYPERTENSION
     Dosage: 1.0 MG, TID
     Route: 048

REACTIONS (5)
  - Dyspnoea [Not Recovered/Not Resolved]
  - Pyrexia [Unknown]
  - Respiratory distress [Unknown]
  - Oedema peripheral [Unknown]
  - Hypoxia [None]

NARRATIVE: CASE EVENT DATE: 2017
